FAERS Safety Report 19452224 (Version 1)
Quarter: 2021Q2

REPORT INFORMATION
  Report Type: Spontaneous
  Country: FR (occurrence: FR)
  Receive Date: 20210623
  Receipt Date: 20210623
  Transmission Date: 20210717
  Serious: Yes (Hospitalization, Congenital Anomaly)
  Sender: FDA-Public Use
  Company Number: FR-ROCHE-2851280

PATIENT
  Age: 14 Year
  Sex: Male

DRUGS (3)
  1. DEPAKINE [Suspect]
     Active Substance: VALPROATE SODIUM
     Indication: PRODUCT USED FOR UNKNOWN INDICATION
     Route: 064
  2. CARBAMAZEPINE. [Suspect]
     Active Substance: CARBAMAZEPINE
     Indication: PRODUCT USED FOR UNKNOWN INDICATION
     Dosage: UNK
     Route: 064
  3. CLONAZEPAM. [Suspect]
     Active Substance: CLONAZEPAM
     Indication: PRODUCT USED FOR UNKNOWN INDICATION
     Dosage: UNK
     Route: 064

REACTIONS (16)
  - Gynaecomastia [Unknown]
  - Language disorder [Not Recovered/Not Resolved]
  - Psychomotor skills impaired [Unknown]
  - Social avoidant behaviour [Unknown]
  - Nasopharyngitis [Unknown]
  - Communication disorder [Unknown]
  - Foetal exposure during pregnancy [Unknown]
  - Speech disorder developmental [Unknown]
  - Inguinal hernia [Unknown]
  - Visual impairment [Unknown]
  - Enuresis [Unknown]
  - Overweight [Unknown]
  - Scrotal cyst [Unknown]
  - Ear infection [Unknown]
  - Autism spectrum disorder [Not Recovered/Not Resolved]
  - Haemangioma [Unknown]

NARRATIVE: CASE EVENT DATE: 2015
